FAERS Safety Report 7913216 (Version 6)
Quarter: 2012Q4

REPORT INFORMATION
  Report Type: 
  Country: CA (occurrence: CA)
  Receive Date: 20110425
  Receipt Date: 20120926
  Transmission Date: 20130627
  Serious: Yes (Death, Hospitalization)
  Sender: FDA-Public Use
  Company Number: PHHY2011CA13755

PATIENT
  Age: 77 None
  Sex: Female

DRUGS (1)
  1. SANDOSTATIN LAR [Suspect]
     Indication: ANGIODYSPLASIA
     Dosage: 10 mg, QMO
     Route: 030
     Dates: start: 20100622

REACTIONS (9)
  - Respiratory failure [Fatal]
  - Blindness unilateral [Unknown]
  - Cardiac disorder [Unknown]
  - Chest pain [Unknown]
  - Blood pressure abnormal [Unknown]
  - Anaemia [Unknown]
  - Haemoglobin abnormal [Unknown]
  - Diabetes mellitus [Unknown]
  - Injection site haemorrhage [Unknown]
